FAERS Safety Report 10525602 (Version 1)
Quarter: 2014Q4

REPORT INFORMATION
  Report Type: Spontaneous
  Country: IT (occurrence: IT)
  Receive Date: 20141017
  Receipt Date: 20141017
  Transmission Date: 20150528
  Serious: Yes (Hospitalization)
  Sender: FDA-Public Use
  Company Number: PHHY2014IT133104

PATIENT
  Sex: Female

DRUGS (3)
  1. PAROXETINE [Suspect]
     Active Substance: PAROXETINE\PAROXETINE HYDROCHLORIDE
     Indication: INTENTIONAL SELF-INJURY
     Dosage: 20 DF, ONCE/SINGLE
     Route: 048
     Dates: start: 20140811, end: 20140811
  2. PANTOPRAZOLE [Suspect]
     Active Substance: PANTOPRAZOLE SODIUM
     Indication: INTENTIONAL SELF-INJURY
     Dosage: 13 DF, ONCE/SINGLE
     Route: 048
     Dates: start: 20140811, end: 20140811
  3. DIAZEPAM. [Suspect]
     Active Substance: DIAZEPAM
     Indication: INJURY
     Dosage: 20 ML, ONCE/SINGLE
     Route: 048
     Dates: start: 20140811, end: 20140811

REACTIONS (5)
  - Bradyphrenia [Recovered/Resolved]
  - Hypotension [Recovered/Resolved]
  - Somnolence [Recovered/Resolved]
  - Bradykinesia [Recovered/Resolved]
  - Drug abuse [Recovered/Resolved]

NARRATIVE: CASE EVENT DATE: 20140811
